FAERS Safety Report 7487759-4 (Version None)
Quarter: 2011Q2

REPORT INFORMATION
  Report Type: 
  Country: None (occurrence: None)
  Receive Date: 20110511
  Receipt Date: 20110426
  Transmission Date: 20111010
  Serious: Yes (Hospitalization)
  Sender: FDA-Public Use
  Company Number: DE-1186041

PATIENT
  Age: 60 Year
  Sex: Female

DRUGS (1)
  1. BSS PLUS [Suspect]
     Dosage: (INTRAOCULAR)
     Route: 031
     Dates: start: 20110329, end: 20110329

REACTIONS (4)
  - VISUAL ACUITY REDUCED [None]
  - MACULAR OEDEMA [None]
  - ENDOPHTHALMITIS [None]
  - STAPHYLOCOCCUS TEST POSITIVE [None]
